FAERS Safety Report 13536062 (Version 1)
Quarter: 2017Q2

REPORT INFORMATION
  Report Type: Spontaneous
  Country: US (occurrence: US)
  Receive Date: 20170511
  Receipt Date: 20170511
  Transmission Date: 20170830
  Serious: No
  Sender: FDA-Public Use
  Company Number: US-GLENMARK PHARMACEUTICALS-2016GMK025070

PATIENT

DRUGS (1)
  1. TOPIRAMATE TABLETS 25MG [Suspect]
     Active Substance: TOPIRAMATE
     Indication: PRODUCT USED FOR UNKNOWN INDICATION
     Dosage: UNK
     Route: 065

REACTIONS (5)
  - Rash erythematous [Unknown]
  - Product substitution issue [Unknown]
  - Rash pruritic [Unknown]
  - Adverse drug reaction [Unknown]
  - Rash papular [Unknown]
